FAERS Safety Report 14254453 (Version 3)
Quarter: 2018Q1

REPORT INFORMATION
  Report Type: Spontaneous
  Country: US (occurrence: US)
  Receive Date: 20171206
  Receipt Date: 20180329
  Transmission Date: 20180508
  Serious: Yes (Other)
  Sender: FDA-Public Use
  Company Number: US-PFIZER INC-2017518376

PATIENT
  Age: 54 Year
  Sex: Female

DRUGS (1)
  1. PREMPRO [Suspect]
     Active Substance: ESTROGENS, CONJUGATED\MEDROXYPROGESTERONE ACETATE
     Indication: MENOPAUSE
     Dosage: 0.3MG/1.5MG, 1X/DAY
     Route: 048
     Dates: start: 2014

REACTIONS (8)
  - Emotional disorder [Recovered/Resolved]
  - Breast cyst [Unknown]
  - Breast cancer [Unknown]
  - Breast disorder [Not Recovered/Not Resolved]
  - Crying [Recovered/Resolved]
  - Palpitations [Unknown]
  - Breast pain [Not Recovered/Not Resolved]
  - Acne [Unknown]

NARRATIVE: CASE EVENT DATE: 2016
